FAERS Safety Report 7746534-3 (Version None)
Quarter: 2011Q3

REPORT INFORMATION
  Report Type: 
  Country: None (occurrence: None)
  Receive Date: 20110908
  Receipt Date: 20110826
  Transmission Date: 20111222
  Serious: Yes (Hospitalization)
  Sender: FDA-Public Use
  Company Number: MC201100247

PATIENT
  Age: 55 Year
  Sex: Male
  Weight: 90 kg

DRUGS (5)
  1. ASPIRINE (ACETYLSALICYLIC AICD) [Concomitant]
  2. EFFIAR [Concomitant]
  3. ANGIOMAX [Suspect]
     Indication: ANGIOPLASTY
     Dosage: 0.75 MG/KG, BOLUS, INTRAVENOUS
     Route: 040
     Dates: start: 20110507, end: 20110507
  4. ASPEGIC (ACETYLSALICYLATE LYSINE, AMINOACETIC ACID) [Concomitant]
  5. PRASUGREL (PRASUGREL) [Concomitant]

REACTIONS (5)
  - MYOCARDIAL INFARCTION [None]
  - MEDICATION ERROR [None]
  - THROMBOSIS IN DEVICE [None]
  - CHEST PAIN [None]
  - UNDERDOSE [None]
